FAERS Safety Report 11584983 (Version 1)
Quarter: 2015Q4

REPORT INFORMATION
  Report Type: Spontaneous
  Country: JP (occurrence: JP)
  Receive Date: 20151001
  Receipt Date: 20151001
  Transmission Date: 20160304
  Serious: Yes (Other)
  Sender: FDA-Public Use
  Company Number: JP-PFIZER INC-2015322981

PATIENT
  Age: 52 Year
  Sex: Male

DRUGS (3)
  1. JZOLOFT [Suspect]
     Active Substance: SERTRALINE HYDROCHLORIDE
     Dosage: 50 MG, UNK
     Route: 048
     Dates: start: 200904, end: 200904
  2. JZOLOFT [Suspect]
     Active Substance: SERTRALINE HYDROCHLORIDE
     Dosage: 25 MG, UNK
     Route: 048
     Dates: start: 200902, end: 200904
  3. AMOXAN [Suspect]
     Active Substance: AMOXAPINE
     Dosage: 25 MG, UNK
     Route: 048
     Dates: start: 200904, end: 200904

REACTIONS (1)
  - Interstitial lung disease [Unknown]
